FAERS Safety Report 10976983 (Version 1)
Quarter: 2015Q2

REPORT INFORMATION
  Report Type: Spontaneous
  Country: GB (occurrence: GB)
  Receive Date: 20150402
  Receipt Date: 20150402
  Transmission Date: 20150821
  Serious: Yes (Death, Other)
  Sender: FDA-Public Use
  Company Number: GB-CIPLA LTD.-2015GB02532

PATIENT

DRUGS (7)
  1. LAMOTRIGINE. [Suspect]
     Active Substance: LAMOTRIGINE
     Dosage: 50 MG, UNK
     Route: 048
     Dates: start: 201501
  2. LAMOTRIGINE. [Suspect]
     Active Substance: LAMOTRIGINE
     Dosage: 100 MG, QD
     Route: 048
     Dates: start: 20150207, end: 20150309
  3. QUETIAPINE [Suspect]
     Active Substance: QUETIAPINE
     Indication: BIPOLAR I DISORDER
     Dosage: 25-50MG THREE  TIMES DAILY / AS NECESSARY
     Dates: start: 20150204
  4. QUETIAPINE [Suspect]
     Active Substance: QUETIAPINE
     Dosage: 500MG  ONCE  AT NIGHT PLUS 25-50MG THREE  TIMES DAILY / AS NECESSARY
     Dates: start: 201502
  5. LORAZEPAM. [Concomitant]
     Active Substance: LORAZEPAM
     Indication: ANXIETY
     Dosage: 0.5-1MG TWICE DAILY / AS NECESSARY FOR 3 DAYS  FOR SEVERE ANXIETY
     Dates: start: 20150204
  6. LAMOTRIGINE. [Suspect]
     Active Substance: LAMOTRIGINE
     Indication: BIPOLAR I DISORDER
     Dosage: 25 MG, QD
     Route: 048
     Dates: start: 20150106
  7. QUETIAPINE [Suspect]
     Active Substance: QUETIAPINE
     Dosage: 400MG  ONCE  AT NIGHT PLUS 25-50MG THREE  TIMES DAILY / AS NECESSARY
     Dates: start: 20150204, end: 201502

REACTIONS (6)
  - Overdose [Fatal]
  - Cardiac arrest [Fatal]
  - Seizure [Fatal]
  - Paranoia [Not Recovered/Not Resolved]
  - Persecutory delusion [Not Recovered/Not Resolved]
  - Depression [Not Recovered/Not Resolved]

NARRATIVE: CASE EVENT DATE: 20150204
